FAERS Safety Report 7992213-7 (Version None)
Quarter: 2011Q4

REPORT INFORMATION
  Report Type: 
  Country: None (occurrence: None)
  Receive Date: 20111219
  Receipt Date: 20110203
  Transmission Date: 20120403
  Serious: No
  Sender: FDA-Public Use
  Company Number: US-ASTRAZENECA-2011SE06648

PATIENT
  Sex: Female

DRUGS (6)
  1. ATIVAN [Concomitant]
  2. ADDERALL 5 [Concomitant]
  3. LEVOXYL [Concomitant]
  4. CRESTOR [Suspect]
     Route: 048
  5. TRAZODONE HCL [Concomitant]
  6. SEROQUEL [Concomitant]

REACTIONS (2)
  - DEPRESSION [None]
  - AGITATION [None]
